FAERS Safety Report 26179454 (Version 1)
Quarter: 2025Q4

REPORT INFORMATION
  Report Type: Spontaneous
  Country: RU (occurrence: RU)
  Receive Date: 20251219
  Receipt Date: 20251219
  Transmission Date: 20260119
  Serious: Yes (Death)
  Sender: ROCHE
  Company Number: RU-ROCHE-10000462505

PATIENT
  Sex: Female

DRUGS (1)
  1. RISDIPLAM [Suspect]
     Active Substance: RISDIPLAM
     Indication: Muscle atrophy

REACTIONS (1)
  - Death [Fatal]
